FAERS Safety Report 16648631 (Version 1)
Quarter: 2019Q3

REPORT INFORMATION
  Report Type: Spontaneous
  Country: US (occurrence: US)
  Receive Date: 20190730
  Receipt Date: 20190730
  Transmission Date: 20191004
  Serious: No
  Sender: FDA-Public Use
  Company Number: US-BRISTOL-MYERS SQUIBB COMPANY-BMS-2019-070512

PATIENT
  Age: 39 Year
  Sex: Male
  Weight: 55.33 kg

DRUGS (6)
  1. DOXAZOSIN [Concomitant]
     Active Substance: DOXAZOSIN MESYLATE
     Indication: PRODUCT USED FOR UNKNOWN INDICATION
     Dosage: UNK
     Route: 065
  2. ELIQUIS [Suspect]
     Active Substance: APIXABAN
     Indication: CARDIAC VENTRICULAR THROMBOSIS
     Dosage: 10 MILLIGRAM, BID (FOR 7 DAYS)
     Route: 048
     Dates: start: 20190624
  3. BABY ASPIRIN [Suspect]
     Active Substance: ASPIRIN
     Indication: CHEST PAIN
     Dosage: ONE TIME DOSE IN E.R.
     Route: 065
  4. XANAX [Concomitant]
     Active Substance: ALPRAZOLAM
     Indication: PRODUCT USED FOR UNKNOWN INDICATION
     Dosage: 0.5 MILLIGRAM, QID
     Route: 065
  5. ELIQUIS [Suspect]
     Active Substance: APIXABAN
     Indication: PRODUCT USED FOR UNKNOWN INDICATION
     Dosage: 5 MILLIGRAM, BID
     Route: 048
  6. FUROSEMIDE. [Concomitant]
     Active Substance: FUROSEMIDE
     Indication: PRODUCT USED FOR UNKNOWN INDICATION
     Dosage: 40 MILLIGRAM
     Route: 065

REACTIONS (10)
  - Platelet count abnormal [Unknown]
  - Weight decreased [Unknown]
  - Hypertension [Unknown]
  - Fatigue [Unknown]
  - Chest pain [Unknown]
  - Anaemia [Unknown]
  - Inappropriate schedule of product administration [Unknown]
  - Red blood cell abnormality [Unknown]
  - Gingival bleeding [Unknown]
  - Ear pain [Unknown]

NARRATIVE: CASE EVENT DATE: 20190713
